FAERS Safety Report 10227584 (Version 2)
Quarter: 2014Q2

REPORT INFORMATION
  Report Type: Spontaneous
  Country: JP (occurrence: JP)
  Receive Date: 20140610
  Receipt Date: 20140610
  Transmission Date: 20141212
  Serious: Yes (Hospitalization)
  Sender: FDA-Public Use
  Company Number: JP-DSJP-DSJ-2014-107189

PATIENT
  Sex: 0

DRUGS (7)
  1. OLMETEC [Suspect]
     Indication: HYPERTENSION
     Dosage: 20 MG, QD
     Route: 048
     Dates: start: 2013, end: 20140421
  2. LAC B [Concomitant]
     Dosage: 1 G, TID
     Route: 048
     Dates: end: 20140421
  3. ZYLORIC [Concomitant]
     Dosage: 100 MG, QD
     Route: 048
  4. ATELEC [Concomitant]
     Dosage: 10 MG, BID
     Route: 048
  5. WARFARIN [Concomitant]
     Indication: CEREBRAL INFARCTION
     Dosage: 3.5 MG, QD
     Route: 048
  6. ADOAIR [Concomitant]
     Indication: CHRONIC OBSTRUCTIVE PULMONARY DISEASE
     Dosage: 1 DF, BID
     Route: 055
     Dates: end: 20140421
  7. EXCELASE [Concomitant]
     Dosage: 1 DF, TID
     Route: 048

REACTIONS (4)
  - Tongue oedema [Recovered/Resolved]
  - Lip oedema [Unknown]
  - Eyelid oedema [Unknown]
  - Rash [Unknown]
